FAERS Safety Report 13755289 (Version 2)
Quarter: 2017Q3

REPORT INFORMATION
  Report Type: Spontaneous
  Country: US (occurrence: US)
  Receive Date: 20170714
  Receipt Date: 20170721
  Transmission Date: 20171127
  Serious: No
  Sender: FDA-Public Use
  Company Number: US-PFIZER INC-2017298851

PATIENT
  Sex: Female

DRUGS (1)
  1. IBRANCE [Suspect]
     Active Substance: PALBOCICLIB
     Indication: PANCREATIC CARCINOMA
     Dosage: UNK

REACTIONS (2)
  - Product use in unapproved indication [Unknown]
  - Hepatic enzyme increased [Not Recovered/Not Resolved]
